FAERS Safety Report 9222385 (Version 2)
Quarter: 2015Q4

REPORT INFORMATION
  Report Type: Spontaneous
  Country: US (occurrence: US)
  Receive Date: 20130410
  Receipt Date: 20151103
  Transmission Date: 20160305
  Serious: Yes (Disabling, Other)
  Sender: FDA-Public Use
  Company Number: US-PFIZER INC-2013112470

PATIENT
  Age: 60 Year
  Sex: Male
  Weight: 159 kg

DRUGS (2)
  1. LYRICA [Suspect]
     Active Substance: PREGABALIN
     Indication: PAIN
     Dosage: 300 MG, 2X/DAY
     Dates: start: 1990
  2. LYRICA [Suspect]
     Active Substance: PREGABALIN
     Indication: PARAESTHESIA
     Dosage: 225 MG, 2X/DAY
     Route: 048
     Dates: start: 2007

REACTIONS (5)
  - Hearing impaired [Unknown]
  - Back disorder [Unknown]
  - Motor dysfunction [Unknown]
  - Arthropathy [Unknown]
  - Musculoskeletal disorder [Unknown]
